FAERS Safety Report 11482168 (Version 2)
Quarter: 2015Q3

REPORT INFORMATION
  Report Type: Spontaneous
  Country: DE (occurrence: DE)
  Receive Date: 20150909
  Receipt Date: 20150911
  Transmission Date: 20151125
  Serious: Yes (Death, Other)
  Sender: FDA-Public Use
  Company Number: PHHY2015DE106906

PATIENT
  Age: 43 Year
  Sex: Male

DRUGS (14)
  1. PREDNISOLONE. [Suspect]
     Active Substance: PREDNISOLONE
     Indication: LIVER TRANSPLANT
     Route: 065
  2. MYCOPHENOLATE MOFETIL. [Suspect]
     Active Substance: MYCOPHENOLATE MOFETIL
     Indication: LIVER TRANSPLANT
     Route: 065
  3. EVEROLIMUS [Suspect]
     Active Substance: EVEROLIMUS
     Indication: IMMUNOSUPPRESSANT DRUG THERAPY
  4. LOPINAVIR + RITONAVIR [Concomitant]
     Active Substance: LOPINAVIR\RITONAVIR
     Indication: ANTIRETROVIRAL THERAPY
     Route: 065
  5. LOPINAVIR + RITONAVIR [Concomitant]
     Active Substance: LOPINAVIR\RITONAVIR
     Indication: HIV INFECTION
  6. SAQUINAVIR [Concomitant]
     Active Substance: SAQUINAVIR
     Indication: ANTIRETROVIRAL THERAPY
     Route: 065
  7. CICLOSPORIN [Suspect]
     Active Substance: CYCLOSPORINE
     Indication: IMMUNOSUPPRESSANT DRUG THERAPY
  8. PREDNISOLONE. [Suspect]
     Active Substance: PREDNISOLONE
     Indication: IMMUNOSUPPRESSANT DRUG THERAPY
  9. LAMIVUDINE. [Concomitant]
     Active Substance: LAMIVUDINE
     Indication: HIV INFECTION
  10. CICLOSPORIN [Suspect]
     Active Substance: CYCLOSPORINE
     Indication: LIVER TRANSPLANT
     Route: 065
  11. MYCOPHENOLATE MOFETIL. [Suspect]
     Active Substance: MYCOPHENOLATE MOFETIL
     Indication: IMMUNOSUPPRESSANT DRUG THERAPY
  12. SAQUINAVIR [Concomitant]
     Active Substance: SAQUINAVIR
     Indication: HIV INFECTION
  13. EVEROLIMUS [Suspect]
     Active Substance: EVEROLIMUS
     Indication: LIVER TRANSPLANT
     Route: 065
  14. LAMIVUDINE. [Concomitant]
     Active Substance: LAMIVUDINE
     Indication: ANTIRETROVIRAL THERAPY
     Dosage: 300 MG, QD
     Route: 065

REACTIONS (5)
  - Nephropathy [Unknown]
  - Liver transplant rejection [Unknown]
  - Death [Fatal]
  - Hepatitis C [Unknown]
  - Hepatitis cholestatic [Unknown]
